FAERS Safety Report 5303926-X (Version None)
Quarter: 2007Q1

REPORT INFORMATION
  Report Type: 
  Country: None (occurrence: None)
  Receive Date: 20070201
  Receipt Date: 20061120
  Transmission Date: 20070707
  Serious: No
  Sender: FDA-Public Use
  Company Number: 2006PV025591

PATIENT
  Age: 80 Year
  Sex: Male
  Weight: 83.0083 kg

DRUGS (5)
  1. BYETTA [Suspect]
     Indication: DIABETES MELLITUS NON-INSULIN-DEPENDENT
     Dosage: SEE IMAGE
     Route: 058
     Dates: start: 20060505, end: 20061005
  2. BYETTA [Suspect]
     Indication: DIABETES MELLITUS NON-INSULIN-DEPENDENT
     Dosage: SEE IMAGE
     Route: 058
     Dates: start: 20061006
  3. METFORMIN HCL [Concomitant]
  4. AMARYL [Concomitant]
  5. MIGLITOL [Concomitant]

REACTIONS (1)
  - BLOOD GLUCOSE INCREASED [None]
